FAERS Safety Report 23061767 (Version 1)
Quarter: 2023Q4

REPORT INFORMATION
  Report Type: Report from Study
  Country: US (occurrence: US)
  Receive Date: 20231013
  Receipt Date: 20231013
  Transmission Date: 20240109
  Serious: Yes (Hospitalization, Other)
  Sender: FDA-Public Use
  Company Number: US-ABBVIE-5292807

PATIENT
  Sex: Male

DRUGS (2)
  1. RINVOQ [Suspect]
     Active Substance: UPADACITINIB
     Indication: Rheumatoid arthritis
     Dosage: FORM STRENGTH :15 MILLIGRAM?LAST ADMINISTRATION DATE: 2023
     Route: 048
     Dates: start: 20230301
  2. RINVOQ [Suspect]
     Active Substance: UPADACITINIB
     Indication: Rheumatoid arthritis
     Dosage: STRENGTH:15MG ER?FIRST ADMINISTRATION DATE:2023
     Route: 048

REACTIONS (10)
  - Peripheral swelling [Unknown]
  - Drug ineffective [Unknown]
  - Pain [Unknown]
  - Productive cough [Unknown]
  - Nasopharyngitis [Recovered/Resolved]
  - Mobility decreased [Unknown]
  - Grip strength decreased [Unknown]
  - Musculoskeletal stiffness [Unknown]
  - Loss of personal independence in daily activities [Unknown]
  - Gait disturbance [Unknown]

NARRATIVE: CASE EVENT DATE: 20230101
